FAERS Safety Report 4338183-4 (Version None)
Quarter: 2004Q2

REPORT INFORMATION
  Report Type: 
  Country: None (occurrence: None)
  Receive Date: 20040413
  Receipt Date: 20040413
  Transmission Date: 20050107
  Serious: Yes (Other)
  Sender: FDA-Public Use
  Company Number: None

PATIENT
  Sex: Male

DRUGS (1)
  1. CARMUSTINE [Suspect]
     Indication: BONE MARROW TRANSPLANT
     Dosage: IV
     Route: 042
     Dates: start: 20031107, end: 20031107

REACTIONS (7)
  - BURNING SENSATION [None]
  - HEADACHE [None]
  - HYPERTENSION [None]
  - LIP DISORDER [None]
  - ORAL DISCOMFORT [None]
  - ORAL PAIN [None]
  - TACHYCARDIA [None]
